FAERS Safety Report 12049922 (Version 1)
Quarter: 2016Q1

REPORT INFORMATION
  Report Type: Spontaneous
  Country: CH (occurrence: CH)
  Receive Date: 20160208
  Receipt Date: 20160208
  Transmission Date: 20160526
  Serious: Yes (Hospitalization)
  Sender: FDA-Public Use
  Company Number: CH-EGALET US INC-CH-2016EGA000103

PATIENT

DRUGS (2)
  1. OXYCODONE HYDROCHLORIDE. [Suspect]
     Active Substance: OXYCODONE HYDROCHLORIDE
     Indication: PRODUCT USED FOR UNKNOWN INDICATION
     Dosage: UNK DF, UNK
  2. NALMEFENE [Suspect]
     Active Substance: NALMEFENE
     Indication: ALCOHOLISM
     Dosage: 18 MG, UNK
     Route: 048

REACTIONS (10)
  - Akathisia [Unknown]
  - Drug withdrawal syndrome [Unknown]
  - Agitation [Unknown]
  - Feeling hot [Unknown]
  - Drug interaction [Unknown]
  - Nervousness [Unknown]
  - Restlessness [Unknown]
  - Muscle spasms [Unknown]
  - Diarrhoea [Unknown]
  - Malaise [Unknown]
